FAERS Safety Report 7803932-7 (Version None)
Quarter: 2011Q4

REPORT INFORMATION
  Report Type: 
  Country: None (occurrence: None)
  Receive Date: 20111010
  Receipt Date: 20111005
  Transmission Date: 20120403
  Serious: Yes (Hospitalization)
  Sender: FDA-Public Use
  Company Number: FR-PFIZER INC-2011237090

PATIENT
  Age: 87 Year
  Sex: Female
  Weight: 73 kg

DRUGS (8)
  1. LEXOMIL [Concomitant]
     Indication: ANXIETY
     Dosage: 6 MG, 1X/DAY
     Route: 048
  2. ACETAMINOPHEN [Concomitant]
     Indication: PAIN
     Dosage: 1000 MG, 3X/DAY
     Route: 048
  3. PANTOPRAZOLE [Concomitant]
     Dosage: 20 MG, 1X/DAY
     Route: 048
  4. INNOHEP [Suspect]
     Indication: DEEP VEIN THROMBOSIS
     Dosage: UNK
     Route: 058
     Dates: start: 20110616, end: 20110715
  5. ALDACTONE [Suspect]
     Indication: CARDIAC FAILURE
     Dosage: 25 MG, 1X/DAY
     Route: 048
  6. LASIX [Suspect]
     Indication: CARDIAC FAILURE
     Dosage: 40 MG, 2X/DAY
     Route: 048
  7. LEVOTHYROXINE SODIUM [Concomitant]
     Indication: HYPOTHYROIDISM
     Dosage: 150 UG, 1X/DAY
     Route: 048
  8. SPECIAFOLDINE [Concomitant]
     Indication: VITAMIN B COMPLEX DEFICIENCY
     Dosage: 1 DF, 2X/DAY
     Route: 048

REACTIONS (3)
  - ANAEMIA [None]
  - MUSCLE HAEMORRHAGE [None]
  - HYPERKALAEMIA [None]
